FAERS Safety Report 18636812 (Version 2)
Quarter: 2021Q1

REPORT INFORMATION
  Report Type: Spontaneous
  Country: FR (occurrence: FR)
  Receive Date: 20201219
  Receipt Date: 20210111
  Transmission Date: 20210419
  Serious: Yes (Hospitalization, Other)
  Sender: FDA-Public Use
  Company Number: FR-AUROBINDO-AUR-APL-2020-061074

PATIENT
  Age: 90 Year
  Sex: Male
  Weight: 84.4 kg

DRUGS (1)
  1. LEVOFLOXACIN ARROW LAB 500MG FILM COATED TABLETS [Suspect]
     Active Substance: LEVOFLOXACIN
     Indication: OSTEITIS
     Dosage: 250 MILLIGRAM, EVERY OTHER DAY (500MG LE 14/11/2020 PUIS 250MG 1 JOUR SUR 2 ? PARTIR DU 16/11/2020)
     Route: 048
     Dates: start: 20201114, end: 20201120

REACTIONS (2)
  - Encephalopathy [Recovering/Resolving]
  - Confusional state [Recovering/Resolving]

NARRATIVE: CASE EVENT DATE: 20201119
